FAERS Safety Report 7003026-7 (Version None)
Quarter: 2010Q3

REPORT INFORMATION
  Report Type: 
  Country: None (occurrence: None)
  Receive Date: 20100920
  Receipt Date: 20091015
  Transmission Date: 20110219
  Serious: Yes (Other)
  Sender: FDA-Public Use
  Company Number: US-ASTRAZENECA-2009UW21575

PATIENT
  Age: 555 Month
  Sex: Female
  Weight: 74.8 kg

DRUGS (1)
  1. SEROQUEL [Suspect]
     Indication: INSOMNIA
     Dosage: 25-300 MG
     Route: 048
     Dates: start: 20050601, end: 20070101

REACTIONS (2)
  - NEUROLEPTIC MALIGNANT SYNDROME [None]
  - PANCREATITIS [None]
